FAERS Safety Report 8400207-2 (Version None)
Quarter: 2012Q2

REPORT INFORMATION
  Report Type: 
  Country: None (occurrence: None)
  Receive Date: 20120531
  Receipt Date: 20120524
  Transmission Date: 20120825
  Serious: Yes (Hospitalization)
  Sender: FDA-Public Use
  Company Number: DE-ABBOTT-12P-062-0939069-00

PATIENT
  Sex: Male
  Weight: 59 kg

DRUGS (2)
  1. TRUVADA [Concomitant]
     Indication: PRODUCT USED FOR UNKNOWN INDICATION
     Dates: start: 20100518
  2. KALETRA [Suspect]
     Indication: HIV INFECTION
     Dates: start: 20100518

REACTIONS (2)
  - DIARRHOEA HAEMORRHAGIC [None]
  - VIRAL INFECTION [None]
